FAERS Safety Report 4479005-0 (Version None)
Quarter: 2004Q4

REPORT INFORMATION
  Report Type: 
  Country: None (occurrence: None)
  Receive Date: 20041019
  Receipt Date: 20041011
  Transmission Date: 20050328
  Serious: Yes (Hospitalization)
  Sender: FDA-Public Use
  Company Number: AU-MERCK-0410AUS00124

PATIENT
  Sex: Female

DRUGS (7)
  1. VIOXX [Suspect]
     Route: 048
     Dates: start: 20020101
  2. ACETAMINOPHEN [Concomitant]
     Route: 065
  3. TEGRETOL [Concomitant]
     Route: 065
  4. LASIX [Concomitant]
     Route: 065
  5. SLOW-K [Concomitant]
     Route: 065
  6. NEXIUM [Concomitant]
     Route: 065
  7. LIPITOR [Concomitant]
     Route: 065

REACTIONS (1)
  - MYOCARDIAL ISCHAEMIA [None]
